FAERS Safety Report 7904975-5 (Version None)
Quarter: 2011Q4

REPORT INFORMATION
  Report Type: 
  Country: None (occurrence: None)
  Receive Date: 20111109
  Receipt Date: 20111028
  Transmission Date: 20120403
  Serious: Yes (Other)
  Sender: FDA-Public Use
  Company Number: US-BAYER-2011-027496

PATIENT
  Age: 34 Year
  Sex: Female
  Weight: 66 kg

DRUGS (6)
  1. YAZ [Suspect]
     Indication: CONTRACEPTION
     Dosage: UNK
     Dates: start: 20030701, end: 20070601
  2. PRILOSEC [Concomitant]
     Dosage: ONE DAILY
     Route: 048
  3. AMBIEN [Concomitant]
     Dosage: 5 MG, PRN
     Route: 048
  4. BENADRYL [Concomitant]
     Indication: MULTIPLE ALLERGIES
     Dosage: UNK UNK, PRN
  5. YASMIN [Suspect]
     Indication: CONTRACEPTION
     Dosage: UNK
     Dates: start: 20030701, end: 20070601
  6. ADDERALL 5 [Concomitant]
     Dosage: UNK
     Dates: start: 20061001, end: 20080501

REACTIONS (15)
  - CHOLECYSTITIS CHRONIC [None]
  - BIPOLAR DISORDER [None]
  - DEPRESSION [None]
  - WEIGHT DECREASED [None]
  - INJURY [None]
  - DISABILITY [None]
  - NAUSEA [None]
  - HEPATIC ENZYME INCREASED [None]
  - PAIN [None]
  - FEAR [None]
  - BILIARY DYSKINESIA [None]
  - GALLBLADDER INJURY [None]
  - SUICIDAL IDEATION [None]
  - ABDOMINAL PAIN [None]
  - ABDOMINAL PAIN UPPER [None]
